FAERS Safety Report 10906854 (Version 1)
Quarter: 2015Q1

REPORT INFORMATION
  Report Type: Spontaneous
  Country: US (occurrence: US)
  Receive Date: 20150312
  Receipt Date: 20150312
  Transmission Date: 20150721
  Serious: Yes (Hospitalization, Other)
  Sender: FDA-Public Use
  Company Number: US-UCBSA-2015003784

PATIENT
  Age: 57 Year
  Sex: Female
  Weight: 70 kg

DRUGS (7)
  1. DULOXETINE [Concomitant]
     Active Substance: DULOXETINE
     Indication: ANXIETY
  2. DULOXETINE [Concomitant]
     Active Substance: DULOXETINE
     Indication: DEPRESSION
  3. CIMZIA [Suspect]
     Active Substance: CERTOLIZUMAB PEGOL
     Indication: RHEUMATOID ARTHRITIS
     Dosage: 200 MG, EVERY 4 WEEKS
     Route: 058
     Dates: start: 2012
  4. DULOXETINE [Concomitant]
     Active Substance: DULOXETINE
     Indication: STRESS
     Dosage: 60 MG, ONCE DAILY (QD)
     Route: 048
  5. LEVOTHYROXINE [Concomitant]
     Active Substance: LEVOTHYROXINE
     Indication: HYPOTHYROIDISM
     Dosage: 25 ?G, ONCE DAILY (QD)
     Route: 048
  6. NUCYNTA [Concomitant]
     Active Substance: TAPENTADOL HYDROCHLORIDE
     Indication: PAIN
     Dosage: 20 MG, ONCE DAILY (QD)
     Route: 048
  7. PIROXICAM. [Concomitant]
     Active Substance: PIROXICAM
     Indication: PAIN
     Dosage: 20 MG, ONCE DAILY (QD)
     Route: 048

REACTIONS (6)
  - Musculoskeletal pain [Recovered/Resolved]
  - Anaesthetic complication [Recovered/Resolved]
  - Surgery [Not Recovered/Not Resolved]
  - Intestinal obstruction [Recovered/Resolved]
  - Endodontic procedure [Recovered/Resolved]
  - Osteoarthritis [Recovered/Resolved]

NARRATIVE: CASE EVENT DATE: 2012
